FAERS Safety Report 14826124 (Version 20)
Quarter: 2019Q1

REPORT INFORMATION
  Report Type: Report from Study
  Country: DE (occurrence: DE)
  Receive Date: 20180430
  Receipt Date: 20190208
  Transmission Date: 20190417
  Serious: Yes (Death, Life-Threatening, Hospitalization, Other)
  Sender: FDA-Public Use
  Company Number: DE-ASTELLAS-2018US020043

PATIENT
  Age: 73 Year
  Sex: Female

DRUGS (71)
  1. METOCLOPRAMIDE. [Suspect]
     Active Substance: METOCLOPRAMIDE
     Indication: NAUSEA
     Dosage: 7 MG, EVERY 9 DAYS
     Route: 048
     Dates: start: 20010704, end: 20010712
  2. METFORMIN HYDROCHLORIDE. [Suspect]
     Active Substance: METFORMIN HYDROCHLORIDE
     Indication: DIABETES MELLITUS
     Route: 048
     Dates: start: 20010616, end: 20010714
  3. MOLSIDOMINE [Suspect]
     Active Substance: MOLSIDOMINE
     Dosage: 8 MG, DOSE REDUCED FROM 16 TO 8 MG DAILY
     Route: 048
  4. ZAROXOLYN [Suspect]
     Active Substance: METOLAZONE
     Indication: HYPERTENSION
     Route: 048
     Dates: start: 20010712, end: 20010713
  5. CONCOR [Suspect]
     Active Substance: BISOPROLOL FUMARATE
     Indication: CORONARY ARTERY DISEASE
     Dosage: 8 MG, EVERY 29 DAYS
     Route: 048
     Dates: start: 20010616, end: 20010714
  6. PERENTEROL [Suspect]
     Active Substance: SACCHAROMYCES CEREVISIAE
     Dosage: UNK UNK, UNKNOWN FREQ.
     Route: 048
  7. ATORVASTATIN [Concomitant]
     Active Substance: ATORVASTATIN
     Indication: PRODUCT USED FOR UNKNOWN INDICATION
     Dosage: UNK UNK, UNKNOWN FREQ.
     Route: 065
     Dates: start: 20010616, end: 20010703
  8. ATORVASTATIN [Suspect]
     Active Substance: ATORVASTATIN
     Indication: HYPERLIPIDAEMIA
     Dosage: 20 MG, EVERY 18 DAYS
     Route: 048
     Dates: start: 20010616, end: 20010703
  9. PREDNISOLONE SODIUM SUCCINATE [Suspect]
     Active Substance: PREDNISOLONE SODIUM SUCCINATE
     Indication: DYSPNOEA
     Route: 042
     Dates: start: 20010703, end: 20010703
  10. PREDNISOLONE SODIUM SUCCINATE [Suspect]
     Active Substance: PREDNISOLONE SODIUM SUCCINATE
     Indication: DYSPNOEA
  11. RAMIPRIL. [Suspect]
     Active Substance: RAMIPRIL
     Dosage: 10 MG, EVERY 29 DAY
     Route: 048
     Dates: start: 20010616, end: 20010714
  12. DIAZEPAM. [Suspect]
     Active Substance: DIAZEPAM
     Indication: RESTLESSNESS
     Route: 048
     Dates: start: 20010616, end: 20010703
  13. DIAZEPAM. [Suspect]
     Active Substance: DIAZEPAM
     Route: 048
     Dates: start: 20010616, end: 20010703
  14. IRENAT [Suspect]
     Active Substance: SODIUM PERCHLORATE
     Indication: HYPERTHYROIDISM
     Dosage: 688 MG, (TOTAL DAILY DOSE RANGED FROM 1376.8 MG TO 2065.2 MG)
     Route: 048
     Dates: start: 20010618, end: 20010714
  15. DECORTIN [Suspect]
     Active Substance: PREDNISONE
     Indication: DYSPNOEA
     Route: 042
     Dates: start: 20010703
  16. DECORTIN [Suspect]
     Active Substance: PREDNISONE
     Indication: RESTLESSNESS
     Route: 042
     Dates: start: 20010703, end: 20010703
  17. PERENTEROL [Suspect]
     Active Substance: SACCHAROMYCES CEREVISIAE
     Indication: DIARRHOEA
     Dosage: UNK UNK, UNKNOWN FREQ. 100 MG TO 300MG
     Route: 048
     Dates: start: 20010711, end: 20010714
  18. BISOPROLOL FUMARATE. [Concomitant]
     Active Substance: BISOPROLOL FUMARATE
     Indication: CORONARY ARTERY DISEASE
     Dosage: 8 MG, UNKNOWN FREQ EVERY 29 DAYS.
     Route: 048
     Dates: start: 20010616, end: 20010714
  19. SODIUM PERCHLORATE [Concomitant]
     Active Substance: SODIUM PERCHLORATE
     Indication: PRODUCT USED FOR UNKNOWN INDICATION
     Dosage: UNK UNK, UNKNOWN FREQ.
     Route: 065
     Dates: start: 20010618, end: 20010714
  20. METFORMIN HYDROCHLORIDE. [Suspect]
     Active Substance: METFORMIN HYDROCHLORIDE
     Indication: CORONARY ARTERY DISEASE
     Route: 048
  21. MOLSIDOMINE [Suspect]
     Active Substance: MOLSIDOMINE
     Indication: CORONARY ARTERY DISEASE
     Dosage: 8 MG, (DOSE REDUCED FROM 16 TO 8 MG DAILY
     Route: 048
     Dates: start: 20010703, end: 20010714
  22. EUNERPAN [Suspect]
     Active Substance: MELPERONE HYDROCHLORIDE
     Indication: RESTLESSNESS
     Route: 048
     Dates: start: 20010706, end: 20010712
  23. EUNERPAN [Suspect]
     Active Substance: MELPERONE HYDROCHLORIDE
     Dosage: 105 MG,(DOSE RANGED FROM 80-105 MG DAILY)
     Route: 048
     Dates: start: 20010706, end: 20010712
  24. FRAGMIN [Suspect]
     Active Substance: DALTEPARIN SODIUM
     Indication: THROMBOSIS PROPHYLAXIS
     Dosage: 2500 IU, EVERY 12 DAYS
     Route: 058
     Dates: start: 20010703, end: 20010714
  25. ACETYLSALICYLIC ACID [Suspect]
     Active Substance: ASPIRIN
     Indication: CORONARY ARTERY DISEASE
     Route: 048
     Dates: start: 20010616, end: 20010714
  26. PERENTEROL [Suspect]
     Active Substance: SACCHAROMYCES CEREVISIAE
     Dosage: UNK UNK, UNKNOWN FREQ.
     Route: 048
  27. PERENTEROL [Suspect]
     Active Substance: SACCHAROMYCES CEREVISIAE
     Dosage: UNK UNK, UNKNOWN FREQ.
     Route: 048
  28. PERENTEROL [Suspect]
     Active Substance: SACCHAROMYCES CEREVISIAE
     Dosage: UNK UNK, UNKNOWN FREQ.
     Route: 048
  29. BROMAZEPAM [Concomitant]
     Active Substance: BROMAZEPAM
     Indication: PRODUCT USED FOR UNKNOWN INDICATION
     Dosage: UNK UNK, UNKNOWN FREQ.
     Route: 065
     Dates: start: 20010713, end: 20010714
  30. ISOSORBIDE MONONITRATE. [Suspect]
     Active Substance: ISOSORBIDE MONONITRATE
     Indication: CORONARY ARTERY DISEASE
     Dosage: 1 TABLET, UNKNOWN FREQ.
     Route: 048
     Dates: start: 20010703, end: 20010714
  31. PARACETAMOL [Suspect]
     Active Substance: ACETAMINOPHEN
     Indication: PAIN
     Route: 048
     Dates: start: 20010711, end: 20010711
  32. MOLSIDOMINE [Suspect]
     Active Substance: MOLSIDOMINE
     Dosage: 16 MG, 16 TO 8MG
     Route: 048
  33. NORVASC [Suspect]
     Active Substance: AMLODIPINE BESYLATE
     Indication: CORONARY ARTERY DISEASE
     Route: 048
     Dates: start: 20010703, end: 20010714
  34. DIPOTASSIUM CLORAZEPATE [Suspect]
     Active Substance: CLORAZEPATE DIPOTASSIUM
     Indication: RESTLESSNESS
     Route: 048
     Dates: start: 20010710, end: 20010714
  35. NOVODIGAL                          /00017701/ [Suspect]
     Active Substance: DIGOXIN
     Route: 048
  36. LANTUS [Suspect]
     Active Substance: INSULIN GLARGINE
     Indication: DIABETES MELLITUS
     Route: 058
     Dates: start: 20010616, end: 20010629
  37. PERENTEROL [Suspect]
     Active Substance: SACCHAROMYCES CEREVISIAE
     Dosage: UNK UNK, UNKNOWN FREQ.
     Route: 048
  38. POTASSIUM [Concomitant]
     Active Substance: POTASSIUM
     Indication: PRODUCT USED FOR UNKNOWN INDICATION
     Dosage: UNK UNK, UNKNOWN FREQ.
     Route: 065
     Dates: start: 20010703, end: 20010714
  39. GLIMEPIRIDE. [Concomitant]
     Active Substance: GLIMEPIRIDE
     Indication: PRODUCT USED FOR UNKNOWN INDICATION
     Dosage: UNK UNK, UNKNOWN FREQ.
     Route: 065
     Dates: start: 20010616, end: 20010703
  40. LEXOTANIL [Concomitant]
     Active Substance: BROMAZEPAM
     Indication: PRODUCT USED FOR UNKNOWN INDICATION
     Dosage: UNK UNK, UNKNOWN FREQ.
     Route: 065
     Dates: start: 20010713, end: 20010714
  41. MOLSIDOMINE [Suspect]
     Active Substance: MOLSIDOMINE
     Dosage: 16 MG, EVERY 12 DAYS
     Route: 048
  42. ROCEPHIN [Suspect]
     Active Substance: CEFTRIAXONE SODIUM
     Indication: PYREXIA
     Route: 042
     Dates: start: 20010629, end: 20010703
  43. LASIX [Suspect]
     Active Substance: FUROSEMIDE
     Indication: HYPERTENSION
     Dosage: 120 MG, DOSE RANGED FROM 80 MG-120 MG DAILY
     Route: 042
     Dates: start: 20010703, end: 20010714
  44. VAGMYCIN [Suspect]
     Active Substance: AMPHOTERICIN B\TETRACYCLINE
     Indication: ANTIFUNGAL PROPHYLAXIS
     Route: 048
     Dates: start: 20010703, end: 20010714
  45. HALDOL [Suspect]
     Active Substance: HALOPERIDOL
     Indication: RESTLESSNESS
     Dosage: UNK UNK, ONCE DAILY 3 GTT
     Route: 048
     Dates: start: 20010713, end: 20010714
  46. CEFTRIAXONE SODIUM. [Suspect]
     Active Substance: CEFTRIAXONE SODIUM
     Indication: PYREXIA
     Route: 042
     Dates: start: 20010629, end: 20010703
  47. INSULIN GLARGINE [Concomitant]
     Active Substance: INSULIN GLARGINE
     Indication: PRODUCT USED FOR UNKNOWN INDICATION
     Dosage: UNK UNK, UNKNOWN FREQ.
     Route: 065
     Dates: end: 20010629
  48. PANTOPRAZOLE SODIUM SESQUIHYDRATE [Concomitant]
     Active Substance: PANTOPRAZOLE SODIUM
     Indication: PRODUCT USED FOR UNKNOWN INDICATION
     Dosage: UNK UNK, UNKNOWN FREQ.
     Route: 065
     Dates: start: 20010616, end: 20010714
  49. AMPHOTERICIN B, LIPOSOME [Suspect]
     Active Substance: AMPHOTERICIN B
     Indication: ANTIFUNGAL PROPHYLAXIS
     Route: 048
     Dates: start: 20010703, end: 20010714
  50. METFORMIN HYDROCHLORIDE. [Suspect]
     Active Substance: METFORMIN HYDROCHLORIDE
     Dosage: UNK UNK, UNKNOWN FREQ.
     Route: 048
     Dates: start: 20010616, end: 20010714
  51. RAMIPRIL. [Suspect]
     Active Substance: RAMIPRIL
     Indication: CORONARY ARTERY DISEASE
     Dosage: 10 MG, EVERY 29 DAY
     Route: 048
     Dates: start: 20010616, end: 20010714
  52. CARBIMAZOLE [Suspect]
     Active Substance: CARBIMAZOLE
     Indication: HYPERTHYROIDISM
     Route: 048
     Dates: start: 20010621, end: 20010714
  53. AMARYL [Suspect]
     Active Substance: GLIMEPIRIDE
     Indication: DIABETES MELLITUS
     Dosage: 3 MG, EVERY 18 DAYS
     Route: 048
     Dates: start: 20010616, end: 20010703
  54. PANTOZOL [Suspect]
     Active Substance: PANTOPRAZOLE SODIUM
     Route: 048
     Dates: start: 20010616, end: 20010714
  55. PANTOZOL [Suspect]
     Active Substance: PANTOPRAZOLE SODIUM
     Route: 048
  56. NOVODIGAL                          /00017701/ [Suspect]
     Active Substance: DIGOXIN
     Indication: CORONARY ARTERY DISEASE
     Dosage: 0.2 MG, ONCE DAILY
     Route: 048
     Dates: start: 20010703, end: 20010714
  57. KALIUM                             /00031402/ [Suspect]
     Active Substance: POTASSIUM CHLORIDE
     Indication: ELECTROLYTE IMBALANCE
     Route: 048
     Dates: start: 20010703, end: 20010714
  58. DIGOXIN. [Suspect]
     Active Substance: DIGOXIN
     Indication: CORONARY ARTERY DISEASE
     Dosage: 0.2 MG, UNKNOWN FREQ.
     Route: 048
     Dates: start: 20010703, end: 20010714
  59. POTASSIUM CHLORIDE. [Concomitant]
     Active Substance: POTASSIUM CHLORIDE
     Indication: PRODUCT USED FOR UNKNOWN INDICATION
     Dosage: UNK UNK, UNKNOWN FREQ.
     Route: 065
     Dates: start: 20010703, end: 20010714
  60. TRANXILIUM [Suspect]
     Active Substance: CLORAZEPATE DIPOTASSIUM
     Indication: RESTLESSNESS
     Route: 048
     Dates: start: 20010710, end: 20010714
  61. CAPTOPRIL. [Suspect]
     Active Substance: CAPTOPRIL
     Indication: CORONARY ARTERY DISEASE
     Dosage: 1 TABLET, EVERY 29 DAYS
     Route: 048
     Dates: start: 20010616, end: 20010714
  62. MOLSIDOMINE [Suspect]
     Active Substance: MOLSIDOMINE
     Dosage: 16 MG, UNKNOWN FREQ. (16 MG - 8 MG)
     Route: 048
  63. ROCEPHIN [Suspect]
     Active Substance: CEFTRIAXONE SODIUM
     Indication: PYREXIA
  64. PANTOZOL [Suspect]
     Active Substance: PANTOPRAZOLE SODIUM
     Indication: PROPHYLAXIS
     Dosage: 40 MG, ONCE DAILY (DOSE DECREASED FROM 80 TO 40 MG DAILY)
     Route: 048
     Dates: start: 20010616, end: 20010714
  65. CONCOR [Suspect]
     Active Substance: BISOPROLOL FUMARATE
     Route: 048
  66. CIPROFLOXACIN HYDROCHLORIDE. [Suspect]
     Active Substance: CIPROFLOXACIN HYDROCHLORIDE
     Indication: CHOLECYSTITIS
     Route: 048
     Dates: start: 20010620, end: 20010628
  67. CIPROFLOXACIN HYDROCHLORIDE. [Suspect]
     Active Substance: CIPROFLOXACIN HYDROCHLORIDE
     Route: 048
     Dates: start: 20010710, end: 20010711
  68. PLAVIX [Suspect]
     Active Substance: CLOPIDOGREL BISULFATE
     Indication: CORONARY ARTERY DISEASE
     Route: 048
     Dates: start: 20010704, end: 20010714
  69. LASIX [Suspect]
     Active Substance: FUROSEMIDE
     Route: 042
     Dates: start: 20010703, end: 20010714
  70. TRANXENE [Suspect]
     Active Substance: CLORAZEPATE DIPOTASSIUM
     Indication: RESTLESSNESS
     Route: 048
     Dates: start: 20010710, end: 20010714
  71. DRIED YEAST /05458001/ [Suspect]
     Active Substance: SACCHAROMYCES CEREVISIAE
     Indication: DIARRHOEA
     Dosage: UNK UNK, UNKNOWN FREQ.
     Route: 048
     Dates: start: 20010711, end: 20010714

REACTIONS (16)
  - Diarrhoea [Fatal]
  - Erythema [Fatal]
  - Electrolyte imbalance [Fatal]
  - Toxic epidermal necrolysis [Fatal]
  - Cholecystitis [Fatal]
  - Hyperthyroidism [Fatal]
  - Restlessness [Fatal]
  - Multiple organ dysfunction syndrome [None]
  - Cholelithiasis [Fatal]
  - Nausea [Fatal]
  - Condition aggravated [Fatal]
  - Respiratory disorder [Fatal]
  - Dermatitis exfoliative [Fatal]
  - Hyperthyroidism [Fatal]
  - Blister [Fatal]
  - Multiple organ dysfunction syndrome [Fatal]

NARRATIVE: CASE EVENT DATE: 20010704
